FAERS Safety Report 24658463 (Version 1)
Quarter: 2024Q4

REPORT INFORMATION
  Report Type: Spontaneous
  Country: US (occurrence: None)
  Receive Date: 20241120
  Receipt Date: 20241120
  Transmission Date: 20250115
  Serious: No
  Sender: Public
  Company Number: None

PATIENT
  Age: 77 Year
  Sex: Female

DRUGS (1)
  1. BEYFORTUS [Suspect]
     Active Substance: NIRSEVIMAB-ALIP
     Dosage: FREQUENCY : ONCE;?
     Route: 030
     Dates: start: 20241022, end: 20241022

REACTIONS (1)
  - Product administered to patient of inappropriate age [None]

NARRATIVE: CASE EVENT DATE: 20241022
